FAERS Safety Report 12246250 (Version 4)
Quarter: 2016Q2

REPORT INFORMATION
  Report Type: Spontaneous
  Country: JP (occurrence: JP)
  Receive Date: 20160407
  Receipt Date: 20160622
  Transmission Date: 20160815
  Serious: Yes (Life-Threatening, Hospitalization, Other)
  Sender: FDA-Public Use
  Company Number: JP-GILEAD-2016-0205963

PATIENT
  Age: 87 Year
  Sex: Male
  Weight: 59 kg

DRUGS (8)
  1. NIKORANMART [Concomitant]
     Active Substance: NICORANDIL
     Indication: ANGINA PECTORIS
  2. HARVONI [Suspect]
     Active Substance: LEDIPASVIR\SOFOSBUVIR
     Indication: HEPATIC CIRRHOSIS
     Dosage: UNK
     Route: 065
     Dates: start: 20151207
  3. VOGLIBOSE [Concomitant]
     Active Substance: VOGLIBOSE
     Indication: DIABETES MELLITUS
  4. URSO [Concomitant]
     Active Substance: URSODIOL
  5. TAKEPRON [Concomitant]
     Active Substance: LANSOPRAZOLE
  6. SORASILOL [Concomitant]
     Indication: HYPERTENSION
  7. FERROMIA [Concomitant]
     Active Substance: FERROUS CITRATE
  8. TOCOPHEROL [Concomitant]
     Active Substance: TOCOPHEROL
     Indication: HYPERLIPIDAEMIA

REACTIONS (3)
  - Paralysis [Not Recovered/Not Resolved]
  - Speech disorder [Not Recovered/Not Resolved]
  - Cerebral haemorrhage [Unknown]

NARRATIVE: CASE EVENT DATE: 20160204
